FAERS Safety Report 14197158 (Version 1)
Quarter: 2017Q4

REPORT INFORMATION
  Report Type: Spontaneous
  Country: US (occurrence: US)
  Receive Date: 20171116
  Receipt Date: 20171116
  Transmission Date: 20180321
  Serious: No
  Sender: FDA-Public Use
  Company Number: US-ACTELION-A-NJ2017-162527

PATIENT
  Age: 70 Year
  Sex: Male

DRUGS (4)
  1. VALCHLOR [Suspect]
     Active Substance: MECHLORETHAMINE
     Indication: MYCOSIS FUNGOIDES
     Dosage: UNK
     Route: 061
     Dates: start: 20170621
  2. VALCHLOR [Suspect]
     Active Substance: MECHLORETHAMINE
     Dosage: 3 DAYS ON 3 DAYS OFF
     Route: 061
  3. CLOBETASOL [Concomitant]
     Active Substance: CLOBETASOL
  4. TRIAMCINOLONE [Concomitant]
     Active Substance: TRIAMCINOLONE

REACTIONS (5)
  - Skin burning sensation [Unknown]
  - Erythema [Unknown]
  - Blister [Unknown]
  - Skin ulcer [Unknown]
  - Infection [Unknown]
